FAERS Safety Report 9929176 (Version 2)
Quarter: 2014Q4

REPORT INFORMATION
  Report Type: Report from Study
  Country: BR (occurrence: BR)
  Receive Date: 20140227
  Receipt Date: 20141031
  Transmission Date: 20150529
  Serious: No
  Sender: FDA-Public Use
  Company Number: PHHY2014BR021948

PATIENT
  Sex: Female
  Weight: 58 kg

DRUGS (4)
  1. PURAN [Concomitant]
     Active Substance: LEVOTHYROXINE SODIUM
     Indication: THYROID DISORDER
     Dosage: 1 DF, IN THE MORNING
     Route: 065
     Dates: start: 2008
  2. DDAVP//DESMOPRESSIN ACETATE [Concomitant]
     Indication: DIABETES MELLITUS
     Dosage: UNK
     Route: 065
     Dates: start: 2008
  3. SANDOSTATIN LAR DEPOT [Suspect]
     Active Substance: OCTREOTIDE ACETATE
     Indication: ACROMEGALY
     Dosage: 30 MG, EVERY 28 DAYS
     Route: 065
     Dates: start: 200806
  4. METICORTEN [Concomitant]
     Active Substance: PREDNISONE
     Indication: PRODUCT USED FOR UNKNOWN INDICATION
     Dosage: 0.5 DF, UNK
     Route: 065
     Dates: start: 2008

REACTIONS (10)
  - Asthenia [Not Recovered/Not Resolved]
  - Dizziness [Recovering/Resolving]
  - Retching [Not Recovered/Not Resolved]
  - Nausea [Unknown]
  - Headache [Unknown]
  - Memory impairment [Unknown]
  - General physical health deterioration [Unknown]
  - Abdominal pain upper [Recovering/Resolving]
  - Malaise [Unknown]
  - Vomiting [Unknown]
